FAERS Safety Report 12457845 (Version 1)
Quarter: 2016Q2

REPORT INFORMATION
  Report Type: Spontaneous
  Country: US (occurrence: US)
  Receive Date: 20160611
  Receipt Date: 20160611
  Transmission Date: 20160815
  Serious: No
  Sender: FDA-Public Use
  Company Number: US-009507513-1606USA004997

PATIENT
  Age: 52 Year
  Sex: Female

DRUGS (5)
  1. GLIPIZIDE. [Concomitant]
     Active Substance: GLIPIZIDE
     Dosage: UNK, BID
  2. BELSOMRA [Suspect]
     Active Substance: SUVOREXANT
     Indication: POOR QUALITY SLEEP
     Dosage: 10 MG, QPM
     Route: 048
     Dates: start: 20160608
  3. SIMVASTATIN TABLETS, USP [Concomitant]
     Active Substance: SIMVASTATIN
     Dosage: UNK, QPM
  4. METFORMIN [Concomitant]
     Active Substance: METFORMIN HYDROCHLORIDE
  5. COREG [Concomitant]
     Active Substance: CARVEDILOL
     Dosage: UNK, QAM

REACTIONS (1)
  - Drug ineffective [Unknown]

NARRATIVE: CASE EVENT DATE: 20160608
